FAERS Safety Report 5207051-8 (Version None)
Quarter: 2007Q1

REPORT INFORMATION
  Report Type: 
  Country: None (occurrence: None)
  Receive Date: 20070112
  Receipt Date: 20070109
  Transmission Date: 20070707
  Serious: Yes (Life-Threatening, Hospitalization)
  Sender: FDA-Public Use
  Company Number: DE-BAYER-200611239BVD

PATIENT
  Age: 69 Year
  Sex: Male
  Weight: 90 kg

DRUGS (67)
  1. APROTININ [Suspect]
     Route: 042
     Dates: start: 20060914, end: 20060914
  2. TAZOBAC [Concomitant]
     Indication: LUNG INFECTION
     Dosage: TOTAL DAILY DOSE: 9 MG
     Route: 042
     Dates: start: 20060920, end: 20060930
  3. CIPROFLOXACIN [Concomitant]
     Indication: LUNG INFECTION
     Dosage: TOTAL DAILY DOSE: 400 MG
     Dates: start: 20060920, end: 20060920
  4. CIPROFLOXACIN [Concomitant]
     Dates: start: 20060921, end: 20060930
  5. ACETYLCYSTEINE [Concomitant]
     Dates: start: 20060919
  6. ERYTHROMYCIN [Concomitant]
     Indication: INFECTION
     Dates: start: 20060920, end: 20061004
  7. FUROSEMIDE [Concomitant]
     Route: 042
     Dates: start: 20061012
  8. FUROSEMIDE [Concomitant]
     Route: 042
     Dates: start: 20060920, end: 20060926
  9. FUROSEMIDE [Concomitant]
     Route: 042
     Dates: start: 20061004, end: 20061008
  10. FUROSEMIDE [Concomitant]
     Route: 042
     Dates: start: 20061001, end: 20061001
  11. METOPROLOL SUCCINATE [Concomitant]
     Indication: HYPERTENSION
     Route: 048
     Dates: end: 20060919
  12. NORVASC [Concomitant]
     Indication: HYPERTENSION
     Route: 048
     Dates: end: 20060919
  13. AUGMENTIN '125' [Concomitant]
     Route: 048
     Dates: start: 20060914, end: 20060915
  14. AUGMENTIN '125' [Concomitant]
     Dates: start: 20060913, end: 20060914
  15. SPASMEX [Concomitant]
     Indication: BLADDER SPASM
     Dates: start: 20060914, end: 20060919
  16. MOVICOL [Concomitant]
     Indication: CONSTIPATION
     Dosage: TOTAL DAILY DOSE: 3 U
     Dates: start: 20060918, end: 20060919
  17. NITROGLYCERIN [Concomitant]
     Indication: HYPERTENSION
     Dates: start: 20060916, end: 20060917
  18. LAXOBERAL [Concomitant]
     Indication: CONSTIPATION
     Dates: start: 20060917, end: 20060917
  19. LASIX [Concomitant]
  20. MORPHIUM [Concomitant]
     Dates: start: 20060919, end: 20060919
  21. PANTOZOL [Concomitant]
     Dates: start: 20060919
  22. PROSTIGMIN [Concomitant]
     Indication: CONSTIPATION
     Dates: start: 20060919, end: 20060919
  23. PANTHENOL [Concomitant]
     Indication: CONSTIPATION
     Dates: start: 20060919, end: 20060919
  24. DIPIDOLOR [Concomitant]
     Dates: start: 20060918, end: 20060918
  25. DIPIDOLOR [Concomitant]
     Dates: start: 20060916, end: 20060917
  26. METROCLOPRAMID [Concomitant]
     Indication: NAUSEA
     Dates: start: 20060917, end: 20060917
  27. METROCLOPRAMID [Concomitant]
     Dates: start: 20060916, end: 20060916
  28. TOBRAMYCIN SULFATE [Concomitant]
     Indication: INFECTION
     Dates: start: 20060918, end: 20060918
  29. NORADRENALIN [Concomitant]
     Route: 042
     Dates: start: 20060920
  30. EPINEPHRINE [Concomitant]
     Dates: start: 20060914, end: 20060915
  31. EPINEPHRINE [Concomitant]
     Dates: start: 20060919
  32. SUFENTANIL CITRATE [Concomitant]
     Indication: SEDATION
     Route: 042
     Dates: start: 20060919
  33. MIDAZOLAM HYDROCHLORIDE [Concomitant]
     Indication: SEDATION
     Route: 042
     Dates: start: 20060919
  34. HEPARIN [Concomitant]
     Indication: SEPSIS
     Route: 042
     Dates: start: 20060914, end: 20060915
  35. HEPARIN [Concomitant]
     Route: 042
     Dates: start: 20060919
  36. FLUCONAZOLE [Concomitant]
     Indication: FUNGAL INFECTION
     Dates: start: 20060922, end: 20060924
  37. VARICONAZOL [Concomitant]
     Indication: FUNGAL INFECTION
     Dates: start: 20060924, end: 20060926
  38. LINEZOLID [Concomitant]
     Indication: INFECTION
     Dates: start: 20060924, end: 20061002
  39. AMPHO B [Concomitant]
     Indication: INFECTION
     Dates: start: 20060926
  40. DREISAVIT [Concomitant]
     Indication: INFECTION
     Dates: start: 20060928, end: 20061004
  41. DREISAVIT [Concomitant]
     Dates: start: 20061011, end: 20061012
  42. DREISAVIT [Concomitant]
     Dates: start: 20060924, end: 20060926
  43. MEROPENEM [Concomitant]
     Indication: BACTERIAL INFECTION
     Route: 042
  44. CASPOFUNGIN [Concomitant]
     Indication: BACTERIAL INFECTION
     Dates: start: 20061001
  45. METRONIDAZOLE [Concomitant]
     Indication: PROPHYLAXIS
     Route: 042
     Dates: start: 20060914, end: 20060914
  46. METRONIDAZOLE [Concomitant]
     Route: 042
     Dates: start: 20060915, end: 20060915
  47. METRONIDAZOLE [Concomitant]
     Dates: start: 20061005, end: 20061012
  48. HCT [Concomitant]
     Indication: SEPSIS
  49. SALBUTEROL [Concomitant]
     Indication: INFECTION
     Route: 055
  50. IPRATROPIMBROMID [Concomitant]
     Route: 055
  51. ^BLOOD BOTTLES^ [Concomitant]
     Indication: HAEMORRHAGE
     Dosage: AS USED: 250 ML
     Route: 042
     Dates: start: 20060926, end: 20060926
  52. ^BLOOD BOTTLES^ [Concomitant]
     Dosage: AS USED: 250 ML
     Route: 042
  53. ^BLOOD BOTTLES^ [Concomitant]
     Dosage: AS USED: 250 ML
     Route: 042
     Dates: start: 20060930, end: 20060930
  54. ^BLOOD BOTTLES^ [Concomitant]
     Dosage: AS USED: 250 ML
     Route: 042
     Dates: start: 20060929, end: 20060929
  55. ^BLOOD BOTTLES^ [Concomitant]
     Dosage: AS USED: 250 ML
     Route: 042
     Dates: start: 20061003, end: 20061003
  56. ^BLOOD BOTTLES^ [Concomitant]
     Dosage: AS USED: 250 ML
     Route: 042
     Dates: start: 20061001, end: 20061001
  57. ^BLOOD BOTTLES^ [Concomitant]
     Dosage: AS USED: 250 ML
     Route: 042
     Dates: start: 20060927, end: 20060927
  58. ROCEPHIN [Concomitant]
     Indication: PROPHYLAXIS
     Dates: start: 20060914, end: 20060919
  59. SELEN [Concomitant]
     Indication: SEPSIS
     Dates: start: 20060921, end: 20061005
  60. SELEN [Concomitant]
     Dates: start: 20060920, end: 20060920
  61. ZINK [Concomitant]
     Indication: SEPSIS
     Dates: start: 20060920, end: 20061005
  62. ANTIPHOSPHAT [Concomitant]
     Indication: RENAL FAILURE
     Dates: start: 20061016
  63. ANTIPHOSPHAT [Concomitant]
     Dates: start: 20060921, end: 20060926
  64. HYDROCORTISON [Concomitant]
     Indication: SEPSIS
     Route: 042
     Dates: start: 20061021
  65. HYDROCORTISON [Concomitant]
     Route: 042
     Dates: start: 20061009, end: 20061016
  66. HYDROCORTISON [Concomitant]
     Route: 042
     Dates: start: 20060920, end: 20061007
  67. HYDROCORTISON [Concomitant]
     Route: 042
     Dates: start: 20060914, end: 20060915

REACTIONS (11)
  - FUNGAL SEPSIS [None]
  - HEPATIC FAILURE [None]
  - HYPOTENSION [None]
  - ILEUS [None]
  - LARGE INTESTINAL HAEMORRHAGE [None]
  - NEUROLOGICAL SYMPTOM [None]
  - PULMONARY OEDEMA [None]
  - RENAL FAILURE [None]
  - RETROPERITONEAL HAEMORRHAGE [None]
  - SEPTIC SHOCK [None]
  - URETEROSTOMY SITE DISCOMFORT [None]
